FAERS Safety Report 5335842-1 (Version None)
Quarter: 2007Q2

REPORT INFORMATION
  Report Type: 
  Country: None (occurrence: None)
  Receive Date: 20070228
  Receipt Date: 20060906
  Transmission Date: 20071010
  Serious: Yes (Hospitalization)
  Sender: FDA-Public Use
  Company Number: 06P-163-0343581-00

PATIENT
  Age: 62 Year
  Sex: Male

DRUGS (1)
  1. DILAUDID [Suspect]
     Dosage: 1 MG, 1 IN 10 MIN, INTRAVENOUS
     Route: 042
     Dates: start: 20060905, end: 20060905

REACTIONS (2)
  - RESPIRATORY DEPRESSION [None]
  - RESPIRATORY DISTRESS [None]
